FAERS Safety Report 7904825-7 (Version None)
Quarter: 2011Q4

REPORT INFORMATION
  Report Type: 
  Country: None (occurrence: None)
  Receive Date: 20111109
  Receipt Date: 20111028
  Transmission Date: 20120403
  Serious: Yes (Other)
  Sender: FDA-Public Use
  Company Number: PHEH2011US05501

PATIENT
  Sex: Male
  Weight: 77.098 kg

DRUGS (1)
  1. GLEEVEC [Suspect]
     Indication: CHRONIC MYELOID LEUKAEMIA
     Dosage: 400 MG DAILY
     Route: 048
     Dates: start: 20110716

REACTIONS (5)
  - DYSPHAGIA [None]
  - VOCAL CORD PARALYSIS [None]
  - GASTROINTESTINAL STROMAL TUMOUR [None]
  - DYSPEPSIA [None]
  - WEIGHT INCREASED [None]
